FAERS Safety Report 4730982-X (Version None)
Quarter: 2005Q3

REPORT INFORMATION
  Report Type: 
  Country: None (occurrence: None)
  Receive Date: 20050719
  Receipt Date: 20040719
  Transmission Date: 20060218
  Serious: Yes (Other)
  Sender: FDA-Public Use
  Company Number: 201619

PATIENT
  Age: 35 Year
  Sex: Female
  Weight: 49.4421 kg

DRUGS (8)
  1. AVONEX [Suspect]
     Indication: MULTIPLE SCLEROSIS
     Dosage: 30 UG;QW;IM  30 UG;QW;IM   30 UG;QW;IM
     Route: 030
     Dates: start: 19960501, end: 19991001
  2. AVONEX [Suspect]
     Indication: MULTIPLE SCLEROSIS
     Dosage: 30 UG;QW;IM  30 UG;QW;IM   30 UG;QW;IM
     Route: 030
     Dates: start: 20010601, end: 20030801
  3. AVONEX [Suspect]
     Indication: MULTIPLE SCLEROSIS
     Dosage: 30 UG;QW;IM  30 UG;QW;IM   30 UG;QW;IM
     Route: 030
     Dates: start: 20030801
  4. DARVON [Concomitant]
  5. SOLU-MEDROL [Concomitant]
  6. LAXATIVE (NOS) [Concomitant]
  7. STOOL SOFTENER (NOS) [Concomitant]
  8. PAMELOR [Concomitant]

REACTIONS (3)
  - GRAND MAL CONVULSION [None]
  - INFLUENZA LIKE ILLNESS [None]
  - PAIN IN EXTREMITY [None]
